FAERS Safety Report 8548578-0 (Version None)
Quarter: 2012Q3

REPORT INFORMATION
  Report Type: 
  Country: None (occurrence: None)
  Receive Date: 20120730
  Receipt Date: 20120720
  Transmission Date: 20120928
  Serious: Yes (Hospitalization)
  Sender: FDA-Public Use
  Company Number: US-BAYER-2011-100734

PATIENT
  Age: 29 Year
  Sex: Female
  Weight: 72.562 kg

DRUGS (4)
  1. YAZ [Suspect]
     Dosage: UNK
     Dates: start: 20020101, end: 20060101
  2. YASMIN [Suspect]
     Dosage: UNK
     Dates: start: 20020101, end: 20060101
  3. LOESTRIN FE 1/20 [Concomitant]
  4. IRON [Concomitant]

REACTIONS (12)
  - GENERAL PHYSICAL HEALTH DETERIORATION [None]
  - DIARRHOEA [None]
  - NAUSEA [None]
  - STOMATITIS [None]
  - GASTROINTESTINAL DISORDER [None]
  - ABDOMINAL PAIN [None]
  - BILIARY DYSKINESIA [None]
  - INJURY [None]
  - PAIN [None]
  - ANXIETY [None]
  - CONTUSION [None]
  - EMOTIONAL DISTRESS [None]
